FAERS Safety Report 18866650 (Version 3)
Quarter: 2021Q2

REPORT INFORMATION
  Report Type: Report from Study
  Country: None (occurrence: US)
  Receive Date: 20210208
  Receipt Date: 20210401
  Transmission Date: 20210717
  Serious: Yes (Other)
  Sender: FDA-Public Use
  Company Number: US-ABBVIE-21K-163-3764491-00

PATIENT
  Sex: Female
  Weight: 70.37 kg

DRUGS (7)
  1. LAMOTRIGINE. [Concomitant]
     Active Substance: LAMOTRIGINE
     Indication: BIPOLAR DISORDER
  2. AMITRIPTYLINE [Concomitant]
     Active Substance: AMITRIPTYLINE
     Indication: BIPOLAR DISORDER
  3. LEVOTHYROXINE. [Concomitant]
     Active Substance: LEVOTHYROXINE
     Indication: THYROID DISORDER
  4. RISPERIDONE. [Concomitant]
     Active Substance: RISPERIDONE
     Indication: BIPOLAR DISORDER
  5. RINVOQ [Suspect]
     Active Substance: UPADACITINIB
     Indication: RHEUMATOID ARTHRITIS
     Route: 048
  6. ESTRING [Concomitant]
     Active Substance: ESTRADIOL
     Indication: MENOPAUSAL SYMPTOMS
  7. TEMAZEPAM. [Concomitant]
     Active Substance: TEMAZEPAM
     Indication: BIPOLAR DISORDER

REACTIONS (4)
  - Haemorrhage [Unknown]
  - Intraductal papilloma of breast [Not Recovered/Not Resolved]
  - Impaired healing [Unknown]
  - Mammary duct ectasia [Not Recovered/Not Resolved]

NARRATIVE: CASE EVENT DATE: 2021
